FAERS Safety Report 4296912-2 (Version None)
Quarter: 2004Q1

REPORT INFORMATION
  Report Type: 
  Country: None (occurrence: None)
  Receive Date: 20040213
  Receipt Date: 20040203
  Transmission Date: 20041129
  Serious: Yes (Life-Threatening, Hospitalization)
  Sender: FDA-Public Use
  Company Number: 2004007226

PATIENT
  Age: 61 Year
  Sex: Male

DRUGS (2)
  1. ZOLOFT [Suspect]
     Indication: DEPRESSION
     Dates: start: 20031101
  2. ACETYLSALICYLIC ACID SRT [Suspect]
     Dosage: MIGRAINE

REACTIONS (2)
  - GASTROINTESTINAL HAEMORRHAGE [None]
  - MIGRAINE [None]
